FAERS Safety Report 7753514-0 (Version None)
Quarter: 2011Q3

REPORT INFORMATION
  Report Type: 
  Country: None (occurrence: None)
  Receive Date: 20110913
  Receipt Date: 20110830
  Transmission Date: 20111222
  Serious: Yes (Life-Threatening)
  Sender: FDA-Public Use
  Company Number: 1000023645

PATIENT
  Age: 87 Year
  Sex: Female

DRUGS (4)
  1. MORPHINE SULFATE [Suspect]
     Indication: PROCEDURAL PAIN
     Dosage: 6 DF (1 DOSAGE FORMS, 6 IN 1 D), ORAL
     Route: 048
     Dates: start: 20101123, end: 20101126
  2. XANAX [Suspect]
     Indication: DEPRESSION
     Dosage: (1 DOSAGE FORMS, 3 D)
     Dates: start: 20101123, end: 20101126
  3. DURAGESIC-100 [Suspect]
     Indication: PROCEDURAL PAIN
     Dosage: 0.3333 DF (1 DOSAGE FORMS, 1 IN 3 D), OTHER
     Dates: start: 20101123, end: 20101126
  4. ESCITALOPRAM [Suspect]
     Indication: DEPRESSION
     Dosage: 10 MG (10 MG, 1 IN 1 D), ORAL
     Route: 048
     Dates: start: 20101123, end: 20101126

REACTIONS (6)
  - MIOSIS [None]
  - SOMNOLENCE [None]
  - RESPIRATORY DISTRESS [None]
  - TOXICITY TO VARIOUS AGENTS [None]
  - DRUG INTERACTION [None]
  - COMA [None]
